FAERS Safety Report 24418952 (Version 2)
Quarter: 2024Q4

REPORT INFORMATION
  Report Type: Report from Study
  Country: US (occurrence: US)
  Receive Date: 20241009
  Receipt Date: 20241018
  Transmission Date: 20250114
  Serious: No
  Sender: ROCHE
  Company Number: US-ROCHE-3485799

PATIENT
  Age: 25 Year
  Sex: Male

DRUGS (4)
  1. ACTIVASE [Suspect]
     Active Substance: ALTEPLASE
     Indication: Pericarditis
     Dosage: DATE OF SERVICE REPORTED ON 04/JUL/2023.?VIAL
     Route: 065
  2. ACTIVASE [Suspect]
     Active Substance: ALTEPLASE
     Indication: Pulmonary embolism
  3. CATHFLO ACTIVASE [Suspect]
     Active Substance: ALTEPLASE
     Indication: Pericarditis
     Dosage: DATE OF SERVICE REPORTED ON 08/JUL/2023. STRENGHT: 2 MG?VIAL
     Route: 065
  4. CATHFLO ACTIVASE [Suspect]
     Active Substance: ALTEPLASE
     Indication: Pulmonary embolism

REACTIONS (2)
  - Off label use [Unknown]
  - No adverse event [Unknown]
